FAERS Safety Report 16163894 (Version 2)
Quarter: 2019Q2

REPORT INFORMATION
  Report Type: Spontaneous
  Country: CA (occurrence: CA)
  Receive Date: 20190405
  Receipt Date: 20190411
  Transmission Date: 20190711
  Serious: Yes (Other)
  Sender: FDA-Public Use
  Company Number: CA-PFIZER INC-2019142228

PATIENT
  Age: 78 Year
  Sex: Male
  Weight: 49 kg

DRUGS (1)
  1. METHYLPREDNISOLONE. [Suspect]
     Active Substance: METHYLPREDNISOLONE
     Dosage: UNK
     Route: 042

REACTIONS (5)
  - Drug ineffective [Unknown]
  - Drug resistance [Unknown]
  - Haematochezia [Unknown]
  - Rectal haemorrhage [Unknown]
  - Pain [Unknown]
